FAERS Safety Report 22263891 (Version 1)
Quarter: 2023Q2

REPORT INFORMATION
  Report Type: Report from Study
  Country: CN (occurrence: CN)
  Receive Date: 20230428
  Receipt Date: 20230428
  Transmission Date: 20230722
  Serious: Yes (Other)
  Sender: FDA-Public Use
  Company Number: CN-GUERBET / FUNDTRIP PHARMACEUTICALS-CN-20230104

PATIENT
  Age: 6 Day
  Sex: Male

DRUGS (5)
  1. LIPIODOL [Suspect]
     Active Substance: ETHIODIZED OIL
     Indication: Transcatheter arterial chemoembolisation
     Dosage: THIRD PROCEDURE
     Route: 013
  2. SIROLIMUS [Suspect]
     Active Substance: SIROLIMUS
     Indication: Haemangioma-thrombocytopenia syndrome
     Dosage: 0.8 MG/M2 DAILY, 12-H/EPISODE?RECEIVED FOR 3 MONTHS
     Route: 048
  3. BLEOMYCIN [Suspect]
     Active Substance: BLEOMYCIN SULFATE
     Indication: Transcatheter arterial chemoembolisation
     Dosage: 3 CYCLES
     Route: 013
  4. DEXAMETHASONE [Suspect]
     Active Substance: DEXAMETHASONE
     Indication: Transcatheter arterial chemoembolisation
     Dosage: 3 CYCLES
     Route: 013
  5. POLYVINYL ALCOHOL [Suspect]
     Active Substance: POLYVINYL ALCOHOL
     Indication: Transcatheter arterial chemoembolisation
     Dosage: 3 CYCLES
     Route: 013

REACTIONS (2)
  - Skin necrosis [Unknown]
  - Product use in unapproved indication [Unknown]
